FAERS Safety Report 9898818 (Version 2)
Quarter: 2014Q1

REPORT INFORMATION
  Report Type: Spontaneous
  Country: US (occurrence: US)
  Receive Date: 20140214
  Receipt Date: 20140214
  Transmission Date: 20141002
  Serious: Yes (Hospitalization, Other)
  Sender: FDA-Public Use
  Company Number: US-GILEAD-2011-0044376

PATIENT
  Age: 76 Year
  Sex: Female

DRUGS (10)
  1. LETAIRIS [Suspect]
     Indication: PULMONARY HYPERTENSION
     Dosage: 5 MG, QD
     Route: 048
     Dates: start: 201110
  2. LETAIRIS [Suspect]
     Indication: CARDIAC DISORDER
     Dosage: 5 MG, QD
     Route: 048
     Dates: start: 20110912, end: 20110916
  3. FUROSEMIDE [Concomitant]
  4. POTASSIUM CHLORIDE [Concomitant]
  5. GLIPIZIDE [Concomitant]
  6. ANASTROZOLE [Concomitant]
  7. SPIRONOLACTONE [Concomitant]
  8. ALBUTEROL                          /00139501/ [Concomitant]
  9. MOMETASONE [Concomitant]
  10. MINIPRESS [Concomitant]

REACTIONS (4)
  - Face oedema [Unknown]
  - Oedema peripheral [Unknown]
  - Hypoxia [Unknown]
  - Pulmonary oedema [Recovering/Resolving]
